FAERS Safety Report 24630975 (Version 1)
Quarter: 2024Q4

REPORT INFORMATION
  Report Type: Spontaneous
  Country: JP (occurrence: JP)
  Receive Date: 20241118
  Receipt Date: 20241118
  Transmission Date: 20250115
  Serious: Yes (Other)
  Sender: PFIZER
  Company Number: JP-PFIZER INC-PV202400146972

PATIENT
  Age: 74 Year
  Sex: Male

DRUGS (6)
  1. PACLITAXEL [Suspect]
     Active Substance: PACLITAXEL
     Indication: Extramammary Paget^s disease
     Dosage: 210 MG/M2, CYCLIC (Q3W) AS FIRST-LINE TREATMENT
  2. PACLITAXEL [Suspect]
     Active Substance: PACLITAXEL
     Indication: Metastases to lymph nodes
  3. DOCETAXEL [Suspect]
     Active Substance: DOCETAXEL
     Indication: Extramammary Paget^s disease
     Dosage: 40 MG/M2, 2 CYCLE (Q3W)
  4. DOCETAXEL [Suspect]
     Active Substance: DOCETAXEL
     Indication: Metastases to lymph nodes
  5. TS-1 [Suspect]
     Active Substance: GIMERACIL\OTERACIL POTASSIUM\TEGAFUR
     Indication: Extramammary Paget^s disease
     Dosage: 120 MG, 2 CYCLE (DAILY FOR 2 WEEKS, FOLLOWED BY 1 WEEK REST) AS SECOND-LINE TREATMENT
  6. TS-1 [Suspect]
     Active Substance: GIMERACIL\OTERACIL POTASSIUM\TEGAFUR
     Indication: Metastases to lymph nodes

REACTIONS (3)
  - Renal impairment [Unknown]
  - Mucosal disorder [Unknown]
  - Off label use [Unknown]
